FAERS Safety Report 9863715 (Version 3)
Quarter: 2014Q2

REPORT INFORMATION
  Report Type: Report from Study
  Country: AU (occurrence: AU)
  Receive Date: 20140203
  Receipt Date: 20140515
  Transmission Date: 20141212
  Serious: Yes (Life-Threatening, Hospitalization, Other)
  Sender: FDA-Public Use
  Company Number: PHHY2014AU012204

PATIENT
  Age: 50 Year
  Sex: Male

DRUGS (1)
  1. CLOZARIL [Suspect]
     Indication: SCHIZOPHRENIA
     Dosage: 400 MG, DAILY
     Dates: start: 20090630

REACTIONS (8)
  - Colorectal cancer [Unknown]
  - Gastrointestinal carcinoma [Not Recovered/Not Resolved]
  - Colon cancer [Unknown]
  - Adenocarcinoma [Unknown]
  - Abdominal pain [Unknown]
  - Constipation [Unknown]
  - Obstruction [Unknown]
  - Metastatic lymphoma [Unknown]
